FAERS Safety Report 8779408 (Version 1)
Quarter: 2012Q4

REPORT INFORMATION
  Report Type: Report from Study
  Country: US (occurrence: US)
  Receive Date: 20120912
  Receipt Date: 20120912
  Transmission Date: 20130627
  Serious: Yes (Other)
  Sender: FDA-Public Use
  Company Number: US-US-EMD SERONO, INC.-7159363

PATIENT
  Sex: Female

DRUGS (2)
  1. REBIF [Suspect]
     Indication: MULTIPLE SCLEROSIS
     Route: 058
     Dates: start: 20120304
  2. PROVIGIL [Concomitant]
     Indication: ASTHENIA

REACTIONS (3)
  - Spinal column stenosis [Recovering/Resolving]
  - Injection site erythema [Not Recovered/Not Resolved]
  - Influenza like illness [Unknown]
